FAERS Safety Report 10967087 (Version 2)
Quarter: 2015Q2

REPORT INFORMATION
  Report Type: Spontaneous
  Country: JP (occurrence: JP)
  Receive Date: 20150330
  Receipt Date: 20150617
  Transmission Date: 20150821
  Serious: Yes (Other)
  Sender: FDA-Public Use
  Company Number: JP-BAYER-2015-053052

PATIENT
  Age: 62 Year
  Sex: Male

DRUGS (2)
  1. INTERFERON [Concomitant]
     Active Substance: INTERFERON
     Dosage: UNK
     Dates: start: 201403
  2. NEXAVAR [Suspect]
     Active Substance: SORAFENIB
     Indication: RENAL CELL CARCINOMA
     Dosage: UNK
     Route: 048
     Dates: start: 201403, end: 201407

REACTIONS (1)
  - Diplegia [None]

NARRATIVE: CASE EVENT DATE: 201407
